FAERS Safety Report 8606869-9 (Version None)
Quarter: 2012Q3

REPORT INFORMATION
  Report Type: 
  Country: None (occurrence: None)
  Receive Date: 20120820
  Receipt Date: 20120814
  Transmission Date: 20120928
  Serious: Yes (Disabling)
  Sender: FDA-Public Use
  Company Number: GB-TEVA-353686ISR

PATIENT
  Age: 86 Year
  Sex: Female

DRUGS (4)
  1. AMLODIPINE [Concomitant]
     Dosage: CURRENT
     Route: 048
  2. CITALOPRAM HYDROBROMIDE [Suspect]
     Indication: DEPRESSED MOOD
     Route: 048
     Dates: start: 20120301, end: 20120401
  3. MEBEVERINE [Concomitant]
     Dosage: CURRENT
     Route: 048
  4. MEMANTINE HCL [Concomitant]
     Indication: DEMENTIA
     Dosage: CURRENT
     Route: 048
     Dates: start: 20111001

REACTIONS (3)
  - INCOHERENT [None]
  - SEDATION [None]
  - FALL [None]
